FAERS Safety Report 21035538 (Version 3)
Quarter: 2022Q3

REPORT INFORMATION
  Report Type: Spontaneous
  Country: FR (occurrence: FR)
  Receive Date: 20220701
  Receipt Date: 20220707
  Transmission Date: 20221026
  Serious: Yes (Hospitalization)
  Sender: FDA-Public Use
  Company Number: FR-TEVA-2022-FR-2041328

PATIENT
  Age: 72 Year
  Sex: Male

DRUGS (8)
  1. COTRIMOXAZOLE [Suspect]
     Active Substance: SULFAMETHOXAZOLE\TRIMETHOPRIM
     Indication: Urinary tract infection
     Route: 065
     Dates: start: 20220427
  2. COTRIMOXAZOLE [Suspect]
     Active Substance: SULFAMETHOXAZOLE\TRIMETHOPRIM
     Indication: Escherichia infection
  3. INCB-106385 [Suspect]
     Active Substance: INCB-106385
     Indication: Hormone-refractory prostate cancer
     Route: 048
     Dates: start: 20220426, end: 20220507
  4. INCB-106385 [Suspect]
     Active Substance: INCB-106385
     Dosage: 160 MILLIGRAM DAILY;
     Route: 065
     Dates: start: 20220517, end: 20220601
  5. RETIFANLIMAB [Suspect]
     Active Substance: RETIFANLIMAB
     Indication: Hormone-refractory prostate cancer
     Route: 042
     Dates: start: 20220426, end: 20220426
  6. SKENAN [Concomitant]
     Active Substance: MORPHINE SULFATE
     Indication: Product used for unknown indication
  7. MORPHINE SULFATE [Concomitant]
     Active Substance: MORPHINE SULFATE
     Indication: Product used for unknown indication
     Dates: end: 20220503
  8. HYDROMORPHONE HYDROCHLORIDE [Concomitant]
     Active Substance: HYDROMORPHONE HYDROCHLORIDE
     Indication: Product used for unknown indication
     Dates: start: 20220504

REACTIONS (2)
  - Rash maculo-papular [Recovered/Resolved]
  - Tumour pain [Recovering/Resolving]

NARRATIVE: CASE EVENT DATE: 20220508
